FAERS Safety Report 8394835-0 (Version None)
Quarter: 2012Q2

REPORT INFORMATION
  Report Type: 
  Country: None (occurrence: None)
  Receive Date: 20120530
  Receipt Date: 20120517
  Transmission Date: 20120825
  Serious: Yes (Other)
  Sender: FDA-Public Use
  Company Number: US-MYLANLABS-2012S1010555

PATIENT
  Age: 18 Year
  Sex: Female

DRUGS (2)
  1. LISINOPRIL [Suspect]
     Route: 065
  2. AMLODIPINE BESYLATE [Suspect]
     Route: 065

REACTIONS (1)
  - CIRCULATORY COLLAPSE [None]
